FAERS Safety Report 8502372-5 (Version None)
Quarter: 2012Q3

REPORT INFORMATION
  Report Type: 
  Country: None (occurrence: None)
  Receive Date: 20120711
  Receipt Date: 20120703
  Transmission Date: 20120928
  Serious: Yes (Hospitalization)
  Sender: FDA-Public Use
  Company Number: US-BAYER-2012-019847

PATIENT
  Age: 39 Year
  Sex: Female
  Weight: 73.469 kg

DRUGS (21)
  1. TORADOL [Concomitant]
     Dosage: 30 MG, UNK
     Route: 042
     Dates: start: 20100202
  2. DEMEROL [Concomitant]
     Dosage: 50 MG, UNK
     Route: 030
     Dates: start: 20100202
  3. ANCEF [Concomitant]
     Dosage: 1 G, EVERY 8 HOURS
     Route: 042
     Dates: start: 20100202
  4. HERBAL PREPARATION [Concomitant]
     Dosage: UNK
     Route: 048
     Dates: start: 20100101
  5. HYDROCORTISONE ACETATE [Concomitant]
     Dosage: 25 MG, UNK
     Route: 054
     Dates: start: 20100111
  6. COMPRO [Concomitant]
     Dosage: 25 MG, UNK
     Route: 054
     Dates: start: 20100111
  7. AUGMENTIN '125' [Concomitant]
     Dosage: 500/125 MG
     Route: 048
     Dates: start: 20100121
  8. AVELOX [Concomitant]
     Dosage: 400 MG, UNK
     Route: 048
     Dates: start: 20100129
  9. YASMIN [Suspect]
     Indication: ACNE
     Dosage: UNK
     Route: 048
     Dates: start: 20050801, end: 20100201
  10. YASMIN [Suspect]
     Dosage: UNK
     Dates: start: 20091101, end: 20100201
  11. DROSPIRENONE AND ETHINYL ESTRADIOL [Suspect]
     Indication: ACNE
     Dosage: UNK
     Route: 048
     Dates: start: 20080801, end: 20081001
  12. ROBITUSSIN WITH CODEINE [Concomitant]
     Dosage: UNK
  13. ALPRAZOLAM [Concomitant]
     Dosage: 0.5 MG, UNK
     Route: 048
     Dates: start: 20100111
  14. VITAMIN TAB [Concomitant]
     Dosage: UNK
  15. PEG-3350 WITH FLAVOR PACK [Concomitant]
     Dosage: UNK
     Route: 048
     Dates: start: 20100111
  16. ZOLPIDEM TARTRATE [Concomitant]
     Dosage: 10 MG, UNK
     Route: 048
     Dates: start: 20100111
  17. PHENERGAN SYRUP W/CODEINE [Concomitant]
     Dosage: UNK
     Route: 048
     Dates: start: 20100129
  18. VISTARIL [Concomitant]
     Dosage: 50 MG, UNK
     Route: 030
     Dates: start: 20100202
  19. CEPHALEXIN [Concomitant]
     Dosage: 500 MG, UNK
     Route: 048
     Dates: start: 20100111
  20. VICODIN [Concomitant]
     Dosage: 5/500 MG
     Route: 048
     Dates: start: 20100111
  21. IOPHEN-C NR [Concomitant]
     Dosage: UNK
     Route: 048
     Dates: start: 20100120

REACTIONS (2)
  - PAIN [None]
  - DEEP VEIN THROMBOSIS [None]
